FAERS Safety Report 11178545 (Version 3)
Quarter: 2015Q3

REPORT INFORMATION
  Report Type: Spontaneous
  Country: US (occurrence: US)
  Receive Date: 20150610
  Receipt Date: 20150916
  Transmission Date: 20151125
  Serious: Yes (Death, Hospitalization, Other)
  Sender: FDA-Public Use
  Company Number: US-JNJFOC-20150607850

PATIENT
  Age: 36 Year
  Sex: Male

DRUGS (14)
  1. TACROLIMUS. [Concomitant]
     Active Substance: TACROLIMUS
  2. IMBRUVICA [Suspect]
     Active Substance: IBRUTINIB
     Indication: BURKITT^S LYMPHOMA
     Route: 048
     Dates: start: 20141029, end: 20150501
  3. PREDNISONE. [Concomitant]
     Active Substance: PREDNISONE
  4. LEVEMIR [Concomitant]
     Active Substance: INSULIN DETEMIR
     Indication: DIABETES MELLITUS
  5. IMBRUVICA [Suspect]
     Active Substance: IBRUTINIB
     Indication: B-CELL LYMPHOMA
     Route: 048
     Dates: start: 20141029, end: 20150501
  6. DEXAMETHASONE. [Concomitant]
     Active Substance: DEXAMETHASONE
  7. BUDESONIDE. [Concomitant]
     Active Substance: BUDESONIDE
  8. CIDOFOVIR. [Concomitant]
     Active Substance: CIDOFOVIR
     Indication: CYTOMEGALOVIRUS OESOPHAGITIS
  9. METOPROLOL [Concomitant]
     Active Substance: METOPROLOL
     Indication: HYPERTENSION
  10. CIDOFOVIR. [Concomitant]
     Active Substance: CIDOFOVIR
     Indication: CYTOMEGALOVIRUS VIRAEMIA
  11. ZYPREXA [Concomitant]
     Active Substance: OLANZAPINE
     Indication: SUBSTANCE-INDUCED PSYCHOTIC DISORDER
  12. POSACONAZOLE [Concomitant]
     Active Substance: POSACONAZOLE
  13. PENTAMIDINE [Concomitant]
     Active Substance: PENTAMIDINE
  14. GABAPENTIN. [Concomitant]
     Active Substance: GABAPENTIN
     Indication: NEUROPATHY PERIPHERAL

REACTIONS (16)
  - Off label use [Unknown]
  - Graft versus host disease [Unknown]
  - Disease progression [Fatal]
  - Pleural effusion [Unknown]
  - Skin abrasion [Unknown]
  - Fungal oesophagitis [Unknown]
  - Ecchymosis [Unknown]
  - Sepsis [Not Recovered/Not Resolved]
  - Meningitis bacterial [Not Recovered/Not Resolved]
  - Skin irritation [Unknown]
  - Haemorrhage [Unknown]
  - Anaemia [Unknown]
  - Scab [Unknown]
  - Enterococcal infection [Unknown]
  - Systemic mycosis [Not Recovered/Not Resolved]
  - Cytomegalovirus colitis [Unknown]

NARRATIVE: CASE EVENT DATE: 20141029
